FAERS Safety Report 4932255-9 (Version None)
Quarter: 2006Q1

REPORT INFORMATION
  Report Type: 
  Country: None (occurrence: None)
  Receive Date: 20060228
  Receipt Date: 20060215
  Transmission Date: 20060701
  Serious: Yes (Other)
  Sender: FDA-Public Use
  Company Number: 2006025721

PATIENT
  Age: 74 Year
  Sex: Male

DRUGS (5)
  1. XALATAN [Suspect]
     Indication: OCULAR HYPERTENSION
     Dosage: 1 DROP (1 IN 1 D), INTRAOCULAR
     Route: 031
     Dates: start: 20051214, end: 20051201
  2. DIGOXIN [Concomitant]
  3. CORTICOSTEROIDS (CORTICOSTEROIDS) [Concomitant]
  4. LUMIGAN [Concomitant]
  5. TIMOFTOL (TIMOLOL MALEATE) [Concomitant]

REACTIONS (1)
  - HYPERTENSION [None]
